FAERS Safety Report 6858462-6 (Version None)
Quarter: 2010Q3

REPORT INFORMATION
  Report Type: 
  Country: None (occurrence: None)
  Receive Date: 20100719
  Receipt Date: 20080206
  Transmission Date: 20110219
  Serious: No
  Sender: FDA-Public Use
  Company Number: US-PFIZER INC-2008013531

PATIENT
  Sex: Male

DRUGS (6)
  1. CHANTIX [Suspect]
     Indication: SMOKING CESSATION THERAPY
     Dates: start: 20070502, end: 20070601
  2. EPIVIR [Concomitant]
  3. ACYCLOVIR [Concomitant]
  4. VIREAD [Concomitant]
  5. VIRAMUNE [Concomitant]
  6. MARIJUANA [Concomitant]

REACTIONS (6)
  - ABNORMAL DREAMS [None]
  - ANXIETY [None]
  - DRUG ABUSE [None]
  - DYSGEUSIA [None]
  - MIDDLE INSOMNIA [None]
  - PAROSMIA [None]
